FAERS Safety Report 8773113 (Version 2)
Quarter: 2012Q4

REPORT INFORMATION
  Report Type: 
  Country: JP (occurrence: JP)
  Receive Date: 20120907
  Receipt Date: 20120928
  Transmission Date: 20130627
  Serious: Yes (Other)
  Sender: FDA-Public Use
  Company Number: JP-ROCHE-1088982

PATIENT
  Age: 69 Year
  Sex: Female

DRUGS (1)
  1. ACTIVACIN [Suspect]
     Indication: CEREBRAL INFARCTION
     Route: 042

REACTIONS (4)
  - Hemiplegia [Unknown]
  - Altered state of consciousness [Unknown]
  - Hemisensory neglect [Unknown]
  - Neurological decompensation [Unknown]
